FAERS Safety Report 20330650 (Version 2)
Quarter: 2022Q3

REPORT INFORMATION
  Report Type: Spontaneous
  Country: ES (occurrence: ES)
  Receive Date: 20220113
  Receipt Date: 20220926
  Transmission Date: 20221026
  Serious: Yes (Life-Threatening, Hospitalization, Other)
  Sender: FDA-Public Use
  Company Number: None

PATIENT
  Age: 60 Year
  Sex: Female

DRUGS (4)
  1. CAPECITABINE [Interacting]
     Active Substance: CAPECITABINE
     Indication: Colorectal cancer
     Dosage: 2 CADA 12 H
     Route: 048
     Dates: start: 20211214, end: 20211230
  2. BRIVUDINE [Interacting]
     Active Substance: BRIVUDINE
     Indication: Herpes zoster
     Route: 048
     Dates: start: 20211224, end: 20211225
  3. TRAZODONE HYDROCHLORIDE [Concomitant]
     Active Substance: TRAZODONE HYDROCHLORIDE
     Indication: Insomnia
     Dosage: 1 CADA 24H
     Route: 048
     Dates: start: 20210615
  4. REPAGLINIDA  Accord 1 mg comprimidos EFG, 90 comprimidos [Concomitant]
     Indication: Diabetes mellitus
     Dosage: 2 CADA 8 HORAS
     Route: 048
     Dates: start: 20201230

REACTIONS (5)
  - Vulvovaginal inflammation [Recovered/Resolved]
  - Pharyngeal inflammation [Recovered/Resolved]
  - Oesophagitis [Recovered/Resolved]
  - Agranulocytosis [Recovered/Resolved]
  - Contraindicated product prescribed [Recovered/Resolved]

NARRATIVE: CASE EVENT DATE: 20211224
